FAERS Safety Report 5596138-6 (Version None)
Quarter: 2008Q1

REPORT INFORMATION
  Report Type: 
  Country: None (occurrence: None)
  Receive Date: 20080118
  Receipt Date: 20080115
  Transmission Date: 20080703
  Serious: Yes (Hospitalization, Other)
  Sender: FDA-Public Use
  Company Number: IN-BOEHRINGER INGELHEIM PHARMACEUTICALS, INC.-2008-DE-00273GD

PATIENT
  Age: 35 Year
  Sex: Male

DRUGS (5)
  1. NEVIRAPINE [Suspect]
     Indication: HIV INFECTION
  2. STAVUDINE [Suspect]
     Indication: HIV INFECTION
  3. LAMIVUDINE [Suspect]
     Indication: HIV INFECTION
  4. ACYCLOVIR [Concomitant]
     Indication: GENITAL HERPES
  5. ANTITUBERCULAR AGENTS [Concomitant]

REACTIONS (12)
  - CYTOMEGALOVIRUS CHORIORETINITIS [None]
  - CYTOMEGALOVIRUS INFECTION [None]
  - HEPATIC FUNCTION ABNORMAL [None]
  - HEPATOSPLENOMEGALY [None]
  - IMMUNE RECONSTITUTION SYNDROME [None]
  - JAUNDICE [None]
  - LYMPHADENOPATHY [None]
  - PANCYTOPENIA [None]
  - PENICILLIOSIS [None]
  - PORTAL HYPERTENSIVE GASTROPATHY [None]
  - UVEITIS [None]
  - VISUAL DISTURBANCE [None]
